FAERS Safety Report 10630478 (Version 1)
Quarter: 2014Q4

REPORT INFORMATION
  Report Type: Spontaneous
  Country: US (occurrence: US)
  Receive Date: 20141205
  Receipt Date: 20141205
  Transmission Date: 20150529
  Serious: No
  Sender: FDA-Public Use
  Company Number: US-BRISTOL-MYERS SQUIBB COMPANY-19297415

PATIENT
  Age: 73 Year
  Sex: Male
  Weight: 88.91 kg

DRUGS (5)
  1. BYETTA [Suspect]
     Active Substance: EXENATIDE
     Indication: TYPE 2 DIABETES MELLITUS
     Dosage: BYETTA INJECTION
     Route: 058
     Dates: start: 200508, end: 200508
  2. STARLIX [Concomitant]
     Active Substance: NATEGLINIDE
     Indication: TYPE 2 DIABETES MELLITUS
     Dates: start: 2002, end: 200508
  3. AVANDIA [Concomitant]
     Active Substance: ROSIGLITAZONE MALEATE
     Indication: TYPE 2 DIABETES MELLITUS
     Dates: start: 2002
  4. LANTUS [Concomitant]
     Active Substance: INSULIN GLARGINE
     Indication: TYPE 2 DIABETES MELLITUS
     Dosage: DOSE UNIT:20
     Dates: start: 2002
  5. SYMLIN [Suspect]
     Active Substance: PRAMLINTIDE ACETATE
     Indication: TYPE 2 DIABETES MELLITUS
     Dosage: SYMLIN INJECTION
     Route: 058
     Dates: start: 20050823

REACTIONS (6)
  - Injection site haematoma [Not Recovered/Not Resolved]
  - Flatulence [Unknown]
  - Nausea [Unknown]
  - Injection site pain [Not Recovered/Not Resolved]
  - Blood glucose fluctuation [Unknown]
  - Fatigue [Unknown]

NARRATIVE: CASE EVENT DATE: 200508
